FAERS Safety Report 11697109 (Version 1)
Quarter: 2015Q4

REPORT INFORMATION
  Report Type: Spontaneous
  Country: FR (occurrence: FR)
  Receive Date: 20151104
  Receipt Date: 20151104
  Transmission Date: 20160304
  Serious: Yes (Other)
  Sender: FDA-Public Use
  Company Number: FR-009507513-1511FRA001483

PATIENT
  Age: 35 Year
  Sex: Female

DRUGS (4)
  1. GENTAMICINE [Concomitant]
     Active Substance: GENTAMICIN
     Dosage: 240 MG, UNK
  2. DAPTOMYCIN. [Suspect]
     Active Substance: DAPTOMYCIN
     Indication: INFECTION
     Dosage: 10 MG/KG, QD
     Route: 042
     Dates: start: 20150807, end: 20150814
  3. PIPERACILLINE [Suspect]
     Active Substance: PIPERACILLIN SODIUM
     Indication: SEPSIS
     Dosage: 1 DF, TID
     Route: 042
     Dates: start: 20150805, end: 20150814
  4. VANCOMYCINE [Concomitant]
     Active Substance: VANCOMYCIN
     Dosage: UNK

REACTIONS (1)
  - Tachycardia [Recovered/Resolved]

NARRATIVE: CASE EVENT DATE: 201508
